FAERS Safety Report 21404049 (Version 1)
Quarter: 2022Q4

REPORT INFORMATION
  Report Type: Spontaneous
  Country: US (occurrence: None)
  Receive Date: 20221003
  Receipt Date: 20221003
  Transmission Date: 20230112
  Serious: Yes (unspecified)
  Sender: FDA-Public Use
  Company Number: None

PATIENT
  Age: 48 Year
  Sex: Male
  Weight: 62.5 kg

DRUGS (6)
  1. RILUZOLE [Suspect]
     Active Substance: RILUZOLE
     Indication: Hereditary ataxia
     Dosage: FREQUENCY : TWICE A DAY;?
     Route: 048
  2. Xtampza 9mg daily [Concomitant]
  3. Symbiocrt 160/4/5mcg BID [Concomitant]
  4. Gabapentin 400mg TID [Concomitant]
  5. Tizanidine 2mg TID [Concomitant]
  6. Oxycodone 10mg QID [Concomitant]

REACTIONS (3)
  - Nausea [None]
  - Vomiting [None]
  - Thrombocytopenia [None]

NARRATIVE: CASE EVENT DATE: 20220925
